FAERS Safety Report 15772418 (Version 2)
Quarter: 2019Q1

REPORT INFORMATION
  Report Type: Spontaneous
  Country: US (occurrence: US)
  Receive Date: 20181228
  Receipt Date: 20190111
  Transmission Date: 20190417
  Serious: No
  Sender: FDA-Public Use
  Company Number: US-ASTRAZENECA-2018SF57915

PATIENT
  Age: 14575 Day
  Sex: Female

DRUGS (3)
  1. PULMICORT FLEXHALER [Suspect]
     Active Substance: BUDESONIDE
     Indication: WHEEZING
     Route: 055
  2. PULMICORT FLEXHALER [Suspect]
     Active Substance: BUDESONIDE
     Indication: UPPER RESPIRATORY TRACT INFECTION
     Route: 055
  3. PREDNISONE. [Concomitant]
     Active Substance: PREDNISONE
     Indication: ASTHMA
     Route: 065

REACTIONS (6)
  - Product use in unapproved indication [Unknown]
  - Feeling abnormal [Not Recovered/Not Resolved]
  - Underdose [Not Recovered/Not Resolved]
  - Intentional device misuse [Unknown]
  - Device malfunction [Unknown]
  - Off label use [Unknown]

NARRATIVE: CASE EVENT DATE: 20181126
